FAERS Safety Report 4667448-1 (Version None)
Quarter: 2005Q2

REPORT INFORMATION
  Report Type: 
  Country: None (occurrence: None)
  Receive Date: 20050425
  Receipt Date: 20040426
  Transmission Date: 20051028
  Serious: Yes (Other)
  Sender: FDA-Public Use
  Company Number: 04-000307

PATIENT
  Age: 67 Year
  Sex: Male

DRUGS (5)
  1. DURICEF [Suspect]
     Dosage: ORAL
     Route: 048
  2. TEQUIN [Suspect]
     Dosage: INTRAVENOUS
     Route: 042
  3. ANCEF [Suspect]
  4. VANCOMYCIN [Concomitant]
     Dosage: IV DRIP
     Route: 042
  5. LEVAQUIN [Concomitant]

REACTIONS (1)
  - CLOSTRIDIUM COLITIS [None]
